FAERS Safety Report 11036504 (Version 2)
Quarter: 2015Q2

REPORT INFORMATION
  Report Type: Spontaneous
  Country: IT (occurrence: IT)
  Receive Date: 20150415
  Receipt Date: 20150504
  Transmission Date: 20150821
  Serious: Yes (Other)
  Sender: FDA-Public Use
  Company Number: IT-ROCHE-1563432

PATIENT
  Age: 59 Year
  Sex: Male

DRUGS (14)
  1. ESOPRAL [Concomitant]
     Active Substance: ESOMEPRAZOLE MAGNESIUM
     Route: 042
  2. RITUXIMAB [Suspect]
     Active Substance: RITUXIMAB
     Indication: ALLERGIC GRANULOMATOUS ANGIITIS
     Route: 042
     Dates: start: 20121009, end: 20140523
  3. PEPTAZOL (ITALY) [Concomitant]
     Dosage: 20MG  TABLET
     Route: 065
  4. TACHIPIRINA [Concomitant]
     Active Substance: ACETAMINOPHEN
     Route: 048
  5. RAMIPRIL. [Concomitant]
     Active Substance: RAMIPRIL
     Dosage: 2.5/12.5
     Route: 065
     Dates: start: 20141119
  6. DELTACORTENE [Concomitant]
     Active Substance: PREDNISONE
     Route: 065
     Dates: start: 20141119
  7. ATARAX [Concomitant]
     Active Substance: HYDROXYZINE\HYDROXYZINE HYDROCHLORIDE
     Route: 048
  8. LYRICA [Concomitant]
     Active Substance: PREGABALIN
     Dosage: HARD CAPSULE 75 MG
     Route: 065
  9. LEDERFOLIN [Concomitant]
     Active Substance: LEUCOVORIN CALCIUM
     Dosage: 7.5 MG TABLET
     Route: 065
  10. SERETIDE [Concomitant]
     Active Substance: FLUTICASONE FUROATE\SALMETEROL XINAFOATE
     Dosage: 25/500
     Route: 065
  11. SOLU-MEDROL [Concomitant]
     Active Substance: METHYLPREDNISOLONE SODIUM SUCCINATE
     Route: 042
  12. DELTACORTENE [Concomitant]
     Active Substance: PREDNISONE
     Dosage: TABLET 25 MG
     Route: 065
  13. LYRICA [Concomitant]
     Active Substance: PREGABALIN
     Route: 065
     Dates: start: 20141119
  14. SERETIDE [Concomitant]
     Active Substance: FLUTICASONE FUROATE\SALMETEROL XINAFOATE
     Dosage: 50/500
     Route: 065
     Dates: start: 20141119

REACTIONS (2)
  - Polyneuropathy [Not Recovered/Not Resolved]
  - Off label use [Unknown]

NARRATIVE: CASE EVENT DATE: 20140523
